FAERS Safety Report 10034429 (Version 1)
Quarter: 2014Q1

REPORT INFORMATION
  Report Type: Spontaneous
  Country: US (occurrence: US)
  Receive Date: 20140325
  Receipt Date: 20140325
  Transmission Date: 20141002
  Serious: Yes (Other)
  Sender: FDA-Public Use
  Company Number: US-SA-2014SA034833

PATIENT
  Sex: Female

DRUGS (1)
  1. ALLEGRA 24 HOUR [Suspect]
     Route: 065

REACTIONS (2)
  - Urinary tract infection [Unknown]
  - Drug administration error [Unknown]
